FAERS Safety Report 7999555-X (Version None)
Quarter: 2011Q4

REPORT INFORMATION
  Report Type: 
  Country: None (occurrence: None)
  Receive Date: 20111221
  Receipt Date: 20111216
  Transmission Date: 20120403
  Serious: Yes (Death)
  Sender: FDA-Public Use
  Company Number: US-ASTRAZENECA-2011SE76882

PATIENT
  Age: 80 Year
  Sex: Male

DRUGS (5)
  1. CARVEDILOL [Suspect]
     Route: 048
  2. AMITRIPTYLINE HCL [Suspect]
     Route: 048
  3. AMLODIPINE [Suspect]
     Route: 048
  4. LISINOPRIL [Suspect]
     Route: 048
  5. TRAZODONE HCL [Suspect]
     Route: 048

REACTIONS (2)
  - TOXICITY TO VARIOUS AGENTS [None]
  - COMPLETED SUICIDE [None]
